FAERS Safety Report 7682066-9 (Version None)
Quarter: 2011Q3

REPORT INFORMATION
  Report Type: 
  Country: None (occurrence: None)
  Receive Date: 20110810
  Receipt Date: 20110805
  Transmission Date: 20111222
  Serious: Yes (Death, Life-Threatening)
  Sender: FDA-Public Use
  Company Number: 2010SP026582

PATIENT
  Age: 49 Year
  Sex: Male

DRUGS (6)
  1. ELTROMBOPAG (ELTROMBOPAG) [Suspect]
     Indication: THROMBOCYTOPENIA
     Dosage: 25 MG; QD; PO; 50 MG; QD; PO
     Route: 048
     Dates: start: 20091127, end: 20091211
  2. ELTROMBOPAG (ELTROMBOPAG) [Suspect]
     Indication: THROMBOCYTOPENIA
     Dosage: 25 MG; QD; PO; 50 MG; QD; PO
     Route: 048
     Dates: start: 20091212, end: 20091221
  3. PEGINTERFERON ALFA-2B [Suspect]
     Indication: HEPATITIS C
     Dosage: 150 MCG; QW; SC
     Route: 058
     Dates: start: 20091222, end: 20100505
  4. RIBAVIRIN [Suspect]
     Indication: HEPATITIS C
     Dosage: 1200 MG;QD;PO
     Route: 048
     Dates: start: 20091222, end: 20100505
  5. BLINDED ELTROMBOPAG (ELTROMBOPAG) [Suspect]
     Indication: THROMBOCYTOPENIA
     Dosage: PO; 100 MG; PO
     Route: 048
     Dates: start: 20091222, end: 20100207
  6. BLINDED ELTROMBOPAG (ELTROMBOPAG) [Suspect]
     Indication: THROMBOCYTOPENIA
     Dosage: PO; 100 MG; PO
     Route: 048
     Dates: start: 20100208, end: 20100505

REACTIONS (27)
  - BILIRUBIN CONJUGATED INCREASED [None]
  - BLOOD CREATININE INCREASED [None]
  - C-REACTIVE PROTEIN INCREASED [None]
  - ABDOMINAL SEPSIS [None]
  - OXYGEN SATURATION DECREASED [None]
  - HAEMOGLOBIN DECREASED [None]
  - BLOOD LACTATE DEHYDROGENASE INCREASED [None]
  - BLOOD BICARBONATE DECREASED [None]
  - BASE EXCESS INCREASED [None]
  - ASPARTATE AMINOTRANSFERASE INCREASED [None]
  - BLOOD GLUCOSE DECREASED [None]
  - BLOOD BILIRUBIN INCREASED [None]
  - GAMMA-GLUTAMYLTRANSFERASE INCREASED [None]
  - BLOOD CHOLESTEROL DECREASED [None]
  - WHITE BLOOD CELL COUNT DECREASED [None]
  - PLATELET COUNT DECREASED [None]
  - BLOOD PH DECREASED [None]
  - PCO2 DECREASED [None]
  - BLOOD POTASSIUM DECREASED [None]
  - LOW DENSITY LIPOPROTEIN DECREASED [None]
  - BLOOD TRIGLYCERIDES DECREASED [None]
  - ALANINE AMINOTRANSFERASE INCREASED [None]
  - INTERNATIONAL NORMALISED RATIO INCREASED [None]
  - BLOOD CALCIUM DECREASED [None]
  - BLOOD ALKALINE PHOSPHATASE DECREASED [None]
  - BLOOD ALBUMIN DECREASED [None]
  - HIGH DENSITY LIPOPROTEIN DECREASED [None]
